FAERS Safety Report 6570089-2 (Version None)
Quarter: 2010Q1

REPORT INFORMATION
  Report Type: 
  Country: None (occurrence: None)
  Receive Date: 20100204
  Receipt Date: 20100127
  Transmission Date: 20100710
  Serious: Yes (Death)
  Sender: FDA-Public Use
  Company Number: IN-BAXTER-2010BH002087

PATIENT
  Age: 66 Year
  Sex: Female

DRUGS (2)
  1. DIANEAL [Suspect]
     Indication: PERITONEAL DIALYSIS
     Route: 033
     Dates: start: 20091201, end: 20100101
  2. DIANEAL [Suspect]
     Route: 033
     Dates: start: 20091201, end: 20100101

REACTIONS (1)
  - CEREBROVASCULAR ACCIDENT [None]
